FAERS Safety Report 4873913-4 (Version None)
Quarter: 2006Q1

REPORT INFORMATION
  Report Type: 
  Country: None (occurrence: None)
  Receive Date: 20060104
  Receipt Date: 20051221
  Transmission Date: 20060701
  Serious: Yes (Other)
  Sender: FDA-Public Use
  Company Number: 2005150126

PATIENT
  Age: 54 Year
  Sex: Male
  Weight: 86.1834 kg

DRUGS (7)
  1. GEMFIBROZIL [Suspect]
     Indication: BLOOD TRIGLYCERIDES
     Dosage: 1200 MG (600 MG, 2 IN 1 D)
     Dates: start: 20050826, end: 20051028
  2. SIMVASTATIN [Suspect]
     Indication: ILL-DEFINED DISORDER
  3. CLOPIDOGREL BISULFATE [Suspect]
     Indication: ILL-DEFINED DISORDER
  4. ASA (ACETYSLALICYLIC ACID) [Concomitant]
  5. PLAVIX [Concomitant]
  6. LISINOPRIL [Concomitant]
  7. ACTOS [Concomitant]

REACTIONS (7)
  - BLADDER CANCER [None]
  - BLOOD CREATINE PHOSPHOKINASE INCREASED [None]
  - BURNING SENSATION [None]
  - HAEMATURIA [None]
  - POLLAKIURIA [None]
  - PROSTATE EXAMINATION ABNORMAL [None]
  - PROTEIN URINE [None]
